FAERS Safety Report 20832495 (Version 1)
Quarter: 2022Q2

REPORT INFORMATION
  Report Type: Spontaneous
  Country: US (occurrence: None)
  Receive Date: 20220513
  Receipt Date: 20220513
  Transmission Date: 20220720
  Serious: Yes (Other)
  Sender: FDA-Public Use
  Company Number: None

PATIENT
  Age: 72 Year
  Sex: Male
  Weight: 103.05 kg

DRUGS (4)
  1. PAXLOVID [Suspect]
     Active Substance: NIRMATRELVIR\RITONAVIR
     Indication: COVID-19
     Dosage: OTHER FREQUENCY : ONCE;?
     Route: 048
     Dates: start: 20220510, end: 20220511
  2. MIRTAZAPINE [Concomitant]
     Active Substance: MIRTAZAPINE
  3. PRAZOSIN [Concomitant]
     Active Substance: PRAZOSIN
  4. AMBIEN [Concomitant]
     Active Substance: ZOLPIDEM TARTRATE
     Dates: end: 20220509

REACTIONS (2)
  - Insomnia [None]
  - Nightmare [None]

NARRATIVE: CASE EVENT DATE: 20220510
